FAERS Safety Report 4617574-8 (Version None)
Quarter: 2005Q1

REPORT INFORMATION
  Report Type: 
  Country: None (occurrence: None)
  Receive Date: 20050322
  Receipt Date: 20050309
  Transmission Date: 20050727
  Serious: Yes (Hospitalization, Other)
  Sender: FDA-Public Use
  Company Number: 2005042991

PATIENT
  Sex: Female
  Weight: 58.9676 kg

DRUGS (3)
  1. NEURONTIN [Suspect]
     Indication: HYPOAESTHESIA
     Dosage: 300 MG (100 MG, 3 IN 1 D), ORAL
     Route: 048
  2. ACETAMINOPHEN [Concomitant]
  3. ALL OTHER THERAPEUTIC PRODUCTS [Concomitant]

REACTIONS (9)
  - AMNESIA [None]
  - CONDITION AGGRAVATED [None]
  - FALL [None]
  - HYPOAESTHESIA [None]
  - IMPAIRED DRIVING ABILITY [None]
  - INSOMNIA [None]
  - LOSS OF CONSCIOUSNESS [None]
  - PAIN IN EXTREMITY [None]
  - PHARMACEUTICAL PRODUCT COMPLAINT [None]
